FAERS Safety Report 14162776 (Version 1)
Quarter: 2017Q4

REPORT INFORMATION
  Report Type: Spontaneous
  Country: IT (occurrence: IT)
  Receive Date: 20171106
  Receipt Date: 20171106
  Transmission Date: 20180321
  Serious: Yes (Other)
  Sender: FDA-Public Use
  Company Number: IT-AUROBINDO-AUR-APL-2017-43302

PATIENT
  Age: 43 Year
  Sex: Male
  Weight: 75 kg

DRUGS (14)
  1. VORICONAZOLE. [Suspect]
     Active Substance: VORICONAZOLE
     Indication: PRODUCT USED FOR UNKNOWN INDICATION
     Route: 042
  2. VORICONAZOLE. [Interacting]
     Active Substance: VORICONAZOLE
     Route: 048
  3. VORICONAZOLE. [Interacting]
     Active Substance: VORICONAZOLE
     Route: 048
  4. HALOPERIDOL. [Interacting]
     Active Substance: HALOPERIDOL
     Indication: HALLUCINATION, AUDITORY
     Route: 048
  5. DELORAZEPAM [Concomitant]
     Active Substance: DELORAZEPAM
     Indication: HALLUCINATION, AUDITORY
     Route: 048
  6. AZITHROMYCIN ANHYDROUS. [Concomitant]
     Active Substance: AZITHROMYCIN ANHYDROUS
     Indication: CEREBRAL TOXOPLASMOSIS
  7. VORICONAZOLE. [Interacting]
     Active Substance: VORICONAZOLE
     Route: 048
  8. EMTRICITABINE W/TENOFOVIR [Concomitant]
     Active Substance: EMTRICITABINE\TENOFOVIR DISOPROXIL
     Indication: CEREBRAL TOXOPLASMOSIS
  9. ATOVAQUONE. [Concomitant]
     Active Substance: ATOVAQUONE
     Indication: CEREBRAL TOXOPLASMOSIS
  10. PANTOPRAZOLE [Concomitant]
     Active Substance: PANTOPRAZOLE
     Indication: NEUROPATHY PERIPHERAL
  11. TRAMADOL. [Concomitant]
     Active Substance: TRAMADOL
     Indication: NEUROPATHY PERIPHERAL
  12. VORICONAZOLE. [Interacting]
     Active Substance: VORICONAZOLE
     Route: 042
  13. RALTEGRAVIR. [Concomitant]
     Active Substance: RALTEGRAVIR
     Indication: CEREBRAL TOXOPLASMOSIS
  14. PREGABALIN. [Concomitant]
     Active Substance: PREGABALIN
     Indication: NEUROPATHY PERIPHERAL

REACTIONS (2)
  - Hepatotoxicity [Recovered/Resolved]
  - Drug interaction [Unknown]
